FAERS Safety Report 6347352-3 (Version None)
Quarter: 2009Q3

REPORT INFORMATION
  Report Type: 
  Country: None (occurrence: None)
  Receive Date: 20090910
  Receipt Date: 20090902
  Transmission Date: 20100115
  Serious: Yes (Hospitalization, Other)
  Sender: FDA-Public Use
  Company Number: BR-ABBOTT-09P-020-0576047-00

PATIENT
  Sex: Male

DRUGS (9)
  1. DEPAKOTE [Interacting]
     Indication: EPILEPSY
     Dosage: GRANULES DILUTED IN MILK.
     Route: 048
  2. DIAZEPAM [Suspect]
     Indication: CONVULSION
     Route: 042
  3. GARDENAL [Concomitant]
     Indication: EPILEPSY
     Route: 048
  4. HIDANTAL [Concomitant]
     Indication: EPILEPSY
     Route: 048
  5. RIVOTRIL [Concomitant]
     Indication: EPILEPSY
     Route: 048
  6. HALDOL [Concomitant]
     Indication: DRUG USE FOR UNKNOWN INDICATION
     Route: 048
  7. CEFTRIAXONE [Concomitant]
     Indication: DRUG USE FOR UNKNOWN INDICATION
     Route: 030
     Dates: start: 20090525
  8. ALLEGRA [Concomitant]
     Indication: DRUG USE FOR UNKNOWN INDICATION
     Route: 048
  9. NASONEX [Concomitant]
     Indication: STEROID THERAPY

REACTIONS (10)
  - ADENOTONSILLECTOMY [None]
  - AGGRESSION [None]
  - AGITATION [None]
  - CONVULSION [None]
  - INSOMNIA [None]
  - PARTIAL SEIZURES [None]
  - POSTOPERATIVE THROMBOSIS [None]
  - PRECOCIOUS PUBERTY [None]
  - PYREXIA [None]
  - RESPIRATORY DEPRESSION [None]
